FAERS Safety Report 19814114 (Version 1)
Quarter: 2021Q3

REPORT INFORMATION
  Report Type: Spontaneous
  Country: US (occurrence: US)
  Receive Date: 20210910
  Receipt Date: 20210910
  Transmission Date: 20211014
  Serious: No
  Sender: FDA-Public Use
  Company Number: None

PATIENT
  Age: 23 Year
  Weight: 58.97 kg

DRUGS (1)
  1. MIRENA [Suspect]
     Active Substance: LEVONORGESTREL
     Dates: start: 20200110

REACTIONS (5)
  - Crying [None]
  - Vomiting [None]
  - Catatonia [None]
  - Pain [None]
  - Complication associated with device [None]

NARRATIVE: CASE EVENT DATE: 20210910
